FAERS Safety Report 10532966 (Version 4)
Quarter: 2015Q2

REPORT INFORMATION
  Report Type: Spontaneous
  Country: IE (occurrence: IE)
  Receive Date: 20141022
  Receipt Date: 20150622
  Transmission Date: 20150821
  Serious: Yes (Hospitalization, Other)
  Sender: FDA-Public Use
  Company Number: IE-AMGEN-IRLSP2014081127

PATIENT
  Age: 16 Year
  Sex: Male

DRUGS (4)
  1. ENBREL [Suspect]
     Active Substance: ETANERCEPT
     Dosage: 50 MG ONCE A WEEK TO 50 MG WEEKLY (EVERY THURSDAY BEFORE HE GOES TO BED)
     Route: 065
     Dates: start: 201301
  2. FLAGYL                             /00012502/ [Concomitant]
     Indication: INFECTION PROPHYLAXIS
     Dosage: ONCE A MONTH ON THURSDAY
     Dates: start: 2005
  3. ENBREL [Suspect]
     Active Substance: ETANERCEPT
     Indication: PSORIASIS
     Dosage: 25 MG, 2X/WEEK
     Route: 065
     Dates: start: 2011, end: 201301
  4. RISPERDAL [Concomitant]
     Active Substance: RISPERIDONE
     Indication: AUTISM
     Dosage: UNK, 2X/DAY (ONE IN THE MORNING, ONE AT NIGHT)
     Dates: start: 2012

REACTIONS (6)
  - Pyrexia [Unknown]
  - Malaise [Recovered/Resolved]
  - Dysphagia [Unknown]
  - Lower respiratory tract infection [Recovered/Resolved]
  - Ear disorder [Unknown]
  - Condition aggravated [Unknown]

NARRATIVE: CASE EVENT DATE: 2014
